FAERS Safety Report 19171170 (Version 1)
Quarter: 2021Q2

REPORT INFORMATION
  Report Type: Spontaneous
  Country: CA (occurrence: CA)
  Receive Date: 20210422
  Receipt Date: 20210422
  Transmission Date: 20210717
  Serious: Yes (Other)
  Sender: FDA-Public Use
  Company Number: CA-ROCHE-2813348

PATIENT
  Age: 77 Year
  Sex: Male
  Weight: 76 kg

DRUGS (5)
  1. BEVACIZUMAB. [Suspect]
     Active Substance: BEVACIZUMAB
     Indication: MESOTHELIOMA
     Route: 042
  2. ZOMETA [Concomitant]
     Active Substance: ZOLEDRONIC ACID
     Route: 042
  3. PEMBROLIZUMAB. [Concomitant]
     Active Substance: PEMBROLIZUMAB
     Route: 065
  4. GEMCITABINE. [Concomitant]
     Active Substance: GEMCITABINE
     Route: 065
  5. CARBOPLATIN. [Concomitant]
     Active Substance: CARBOPLATIN
     Route: 065

REACTIONS (5)
  - Platelet count decreased [Recovered/Resolved]
  - Weight decreased [Recovered/Resolved]
  - Neutropenia [Recovered/Resolved]
  - Heart rate decreased [Recovered/Resolved]
  - Blood pressure systolic increased [Recovered/Resolved]
